FAERS Safety Report 8050005-7 (Version None)
Quarter: 2012Q1

REPORT INFORMATION
  Report Type: 
  Country: None (occurrence: None)
  Receive Date: 20120117
  Receipt Date: 20120111
  Transmission Date: 20120608
  Serious: Yes (Other)
  Sender: FDA-Public Use
  Company Number: DE-PFIZER INC-2011274131

PATIENT
  Age: 50 Year
  Sex: Female
  Weight: 67 kg

DRUGS (1)
  1. AROMASIN [Suspect]
     Indication: BREAST CANCER
     Dosage: 25 MG, 1X/DAY
     Dates: start: 20110501, end: 20111101

REACTIONS (2)
  - CARPAL TUNNEL SYNDROME [None]
  - TRIGGER FINGER [None]
